FAERS Safety Report 7562379-1 (Version None)
Quarter: 2011Q2

REPORT INFORMATION
  Report Type: 
  Country: None (occurrence: None)
  Receive Date: 20110622
  Receipt Date: 20110609
  Transmission Date: 20111010
  Serious: Yes (Hospitalization, Other)
  Sender: FDA-Public Use
  Company Number: US-ELI_LILLY_AND_COMPANY-US201106000609

PATIENT
  Sex: Female

DRUGS (3)
  1. FORTEO [Suspect]
     Dosage: 20 UG, QD
     Route: 065
  2. FORTEO [Suspect]
     Indication: OSTEOPOROSIS
     Dosage: 20 UG, QD
     Dates: start: 20050101
  3. FORTEO [Suspect]
     Dosage: 20 UG, QD

REACTIONS (6)
  - HEART VALVE REPLACEMENT [None]
  - MALAISE [None]
  - DYSPNOEA [None]
  - GAIT DISTURBANCE [None]
  - COMA [None]
  - PULMONARY OEDEMA [None]
